FAERS Safety Report 8430620-9 (Version None)
Quarter: 2012Q2

REPORT INFORMATION
  Report Type: 
  Country: None (occurrence: None)
  Receive Date: 20120606
  Receipt Date: 20120606
  Transmission Date: 20120825
  Serious: Yes (Hospitalization)
  Sender: FDA-Public Use
  Company Number: None

PATIENT
  Sex: Female
  Weight: 21.4 kg

DRUGS (3)
  1. CYTARABINE [Suspect]
     Dosage: 30 MG
     Dates: end: 20120423
  2. TRETINOIN [Suspect]
     Dosage: 280 MG
     Dates: end: 20120507
  3. MITOXANTRONE HYDROCHLORIDE [Suspect]
     Dosage: 16.4 MG
     Dates: end: 20120426

REACTIONS (8)
  - SEPTIC SHOCK [None]
  - PNEUMONIA [None]
  - TACHYCARDIA [None]
  - STAPHYLOCOCCAL BACTERAEMIA [None]
  - CARDIAC MURMUR [None]
  - PANCYTOPENIA [None]
  - ENDOCARDITIS [None]
  - TRICUSPID VALVE INCOMPETENCE [None]
